FAERS Safety Report 4375443-5 (Version None)
Quarter: 2004Q2

REPORT INFORMATION
  Report Type: 
  Country: None (occurrence: None)
  Receive Date: 20040528
  Receipt Date: 20040512
  Transmission Date: 20050107
  Serious: No
  Sender: FDA-Public Use
  Company Number: CART-10183

PATIENT
  Age: 53 Year
  Sex: Male

DRUGS (1)
  1. CARTICEL [Suspect]
     Indication: ARTHROPATHY
     Dosage: 1 NA ONCE IS
     Dates: start: 19961001, end: 19961001

REACTIONS (5)
  - DISEASE PROGRESSION [None]
  - FAILURE OF IMPLANT [None]
  - GRAFT COMPLICATION [None]
  - LOCALISED OSTEOARTHRITIS [None]
  - PATELLOFEMORAL PAIN SYNDROME [None]
